FAERS Safety Report 6328752-4 (Version None)
Quarter: 2009Q3

REPORT INFORMATION
  Report Type: 
  Country: None (occurrence: None)
  Receive Date: 20090824
  Receipt Date: 20090824
  Transmission Date: 20100115
  Serious: Yes (Other)
  Sender: FDA-Public Use
  Company Number: None

PATIENT
  Age: 11 Year
  Sex: Male
  Weight: 40.8237 kg

DRUGS (1)
  1. MIDODRINE HYDROCHLORIDE [Suspect]
     Indication: POSTURAL ORTHOSTATIC TACHYCARDIA SYNDROME
     Dosage: 5MG PO QID
     Route: 048
     Dates: start: 20060613

REACTIONS (1)
  - UNEVALUABLE EVENT [None]
